FAERS Safety Report 6879874-0 (Version None)
Quarter: 2010Q3

REPORT INFORMATION
  Report Type: 
  Country: None (occurrence: None)
  Receive Date: 20100727
  Receipt Date: 20091020
  Transmission Date: 20110219
  Serious: No
  Sender: FDA-Public Use
  Company Number: US-ABBOTT-09P-163-0604597-00

PATIENT
  Sex: Female
  Weight: 74.91 kg

DRUGS (5)
  1. SYNTHROID [Suspect]
     Indication: HYPOTHYROIDISM
     Route: 048
     Dates: start: 20050101
  2. SYNTHROID [Suspect]
     Route: 048
     Dates: start: 20090901
  3. SYNTHROID [Suspect]
     Route: 048
  4. CLARITIN [Concomitant]
     Indication: SEASONAL ALLERGY
  5. LEXAPRO [Concomitant]
     Indication: DEPRESSION

REACTIONS (2)
  - FATIGUE [None]
  - WEIGHT INCREASED [None]
